FAERS Safety Report 23506650 (Version 1)
Quarter: 2024Q1

REPORT INFORMATION
  Report Type: Report from Study
  Country: EG (occurrence: EG)
  Receive Date: 20240209
  Receipt Date: 20240209
  Transmission Date: 20240410
  Serious: Yes (Disabling)
  Sender: FDA-Public Use
  Company Number: EG-ABBVIE-5625776

PATIENT
  Sex: Male

DRUGS (1)
  1. HUMIRA [Suspect]
     Active Substance: ADALIMUMAB
     Indication: Ankylosing spondylitis
     Dosage: STOP DATE TEXT: INTERRUPTED, START DATE TEXT: ALMOST 2 YEARS AGO
     Route: 058

REACTIONS (1)
  - Gait inability [Not Recovered/Not Resolved]
